FAERS Safety Report 8131346-1 (Version None)
Quarter: 2012Q1

REPORT INFORMATION
  Report Type: 
  Country: None (occurrence: None)
  Receive Date: 20120213
  Receipt Date: 20120206
  Transmission Date: 20120608
  Serious: Yes (Hospitalization)
  Sender: FDA-Public Use
  Company Number: CA-BRISTOL-MYERS SQUIBB COMPANY-16386278

PATIENT
  Age: 73 Year
  Sex: Female
  Weight: 44 kg

DRUGS (16)
  1. GEMCITABINE HYDROCHLORIDE [Suspect]
     Indication: LUNG CANCER METASTATIC
     Dosage: LAST ON 18JAN12,INTER ON 25JAN12 36DAYS.VIAL
     Route: 065
     Dates: start: 20111221
  2. ALBUTEROL SULFATE AUTOHALER [Concomitant]
  3. ATIVAN [Concomitant]
  4. LANSOPRAZOLE [Concomitant]
  5. SENNA [Concomitant]
  6. ZOFRAN [Concomitant]
  7. DOCUSATE [Concomitant]
  8. FORMOTEROL FUMARATE [Concomitant]
  9. OXYCONTIN [Concomitant]
     Dates: start: 20111228
  10. BUDESONIDE [Concomitant]
  11. METOCLOPRAMIDE [Concomitant]
  12. LACTULOSE [Concomitant]
  13. CISPLATIN [Suspect]
     Indication: LUNG CANCER METASTATIC
     Dosage: LAST ON 18JAN12,INTER ON 25JAN12
     Route: 065
     Dates: start: 20111221
  14. DEXAMETHASONE [Concomitant]
  15. ONDANSETRON [Concomitant]
     Dates: start: 20111222
  16. DECADRON [Concomitant]

REACTIONS (1)
  - ABDOMINAL PAIN [None]
